FAERS Safety Report 17438148 (Version 1)
Quarter: 2020Q1

REPORT INFORMATION
  Report Type: Spontaneous
  Country: US (occurrence: US)
  Receive Date: 20200220
  Receipt Date: 20200220
  Transmission Date: 20200409
  Serious: No
  Sender: FDA-Public Use
  Company Number: US-DRREDDYS-USA/USA/20/0119500

PATIENT
  Sex: Male

DRUGS (1)
  1. ZENATANE [Suspect]
     Active Substance: ISOTRETINOIN
     Indication: PRODUCT USED FOR UNKNOWN INDICATION
     Dosage: RME DATES 4 SEPTEMBER 2019, 8 OCTOBER 2019, 14 NOVEMBER 2019 AND 19 DECEMBER 2019.
     Route: 048

REACTIONS (1)
  - Abdominal discomfort [Unknown]
